FAERS Safety Report 14792109 (Version 1)
Quarter: 2018Q2

REPORT INFORMATION
  Report Type: Spontaneous
  Country: US (occurrence: US)
  Receive Date: 20180413
  Receipt Date: 20180413
  Transmission Date: 20180711
  Serious: Yes (Hospitalization)
  Sender: FDA-Public Use
  Company Number: None

PATIENT
  Age: 56 Year
  Sex: Female

DRUGS (13)
  1. OXAPROZIN. [Concomitant]
     Active Substance: OXAPROZIN
  2. FOLIC ACID. [Concomitant]
     Active Substance: FOLIC ACID
  3. OXYCODONE [Concomitant]
     Active Substance: OXYCODONE
  4. ADVIAR DISKU [Concomitant]
  5. MONTELUKAST [Concomitant]
     Active Substance: MONTELUKAST SODIUM
  6. PREDNISONE. [Concomitant]
     Active Substance: PREDNISONE
  7. PROVENTIL AER [Concomitant]
  8. OMEPRAZOLE. [Concomitant]
     Active Substance: OMEPRAZOLE
  9. HYDROMORPHON [Concomitant]
     Active Substance: HYDROMORPHONE
  10. VITAMIN C [Concomitant]
     Active Substance: ASCORBIC ACID
  11. METHOTREXATE. [Concomitant]
     Active Substance: METHOTREXATE
  12. STELARA [Suspect]
     Active Substance: USTEKINUMAB
     Indication: PRODUCT USED FOR UNKNOWN INDICATION
     Dosage: ?          OTHER FREQUENCY:Q 12 WEEKS;?
     Route: 058
     Dates: start: 201707
  13. SULFASALAZINE DELAYED-RELEASE [Concomitant]
     Active Substance: SULFASALAZINE

REACTIONS (1)
  - Pain [None]
